FAERS Safety Report 10361306 (Version 2)
Quarter: 2015Q1

REPORT INFORMATION
  Report Type: Report from Study
  Country: BR (occurrence: BR)
  Receive Date: 20140804
  Receipt Date: 20150122
  Transmission Date: 20150720
  Serious: Yes (Hospitalization, Other)
  Sender: FDA-Public Use
  Company Number: BR-ROCHE-1445036

PATIENT
  Sex: Male
  Weight: 77 kg

DRUGS (7)
  1. METFORMIN [Concomitant]
     Active Substance: METFORMIN HYDROCHLORIDE
  2. ACTEMRA [Suspect]
     Active Substance: TOCILIZUMAB
     Indication: RHEUMATOID ARTHRITIS
     Route: 042
     Dates: start: 20140526
  3. ACTEMRA [Suspect]
     Active Substance: TOCILIZUMAB
     Route: 042
     Dates: start: 20140620, end: 20140620
  4. LOSARTAN [Concomitant]
     Active Substance: LOSARTAN
  5. CORTISONE [Concomitant]
     Active Substance: CORTISONE\HYDROCORTISONE
  6. ATENOLOL. [Concomitant]
     Active Substance: ATENOLOL
  7. INSULIN [Concomitant]
     Active Substance: INSULIN NOS

REACTIONS (2)
  - Thrombosis [Not Recovered/Not Resolved]
  - Cerebrovascular accident [Unknown]
